FAERS Safety Report 7328228-1 (Version None)
Quarter: 2011Q1

REPORT INFORMATION
  Report Type: 
  Country: None (occurrence: None)
  Receive Date: 20110222
  Receipt Date: 20110115
  Transmission Date: 20110831
  Serious: Yes (Hospitalization, Other)
  Sender: FDA-Public Use
  Company Number: 20109770

PATIENT
  Sex: Female

DRUGS (1)
  1. LIORESAL [Suspect]
     Indication: MUSCLE SPASTICITY
     Dosage: SEE B5 MCG, DAILY, INTRATHECAL
     Route: 037

REACTIONS (13)
  - VOMITING [None]
  - DEVICE MALFUNCTION [None]
  - MEDICAL DEVICE COMPLICATION [None]
  - SEROMA [None]
  - UNEVALUABLE EVENT [None]
  - DIARRHOEA [None]
  - PRURITUS [None]
  - MUSCLE TWITCHING [None]
  - TREMOR [None]
  - OPISTHOTONUS [None]
  - URINARY TRACT INFECTION [None]
  - DRUG WITHDRAWAL SYNDROME [None]
  - PAIN [None]
